FAERS Safety Report 16633726 (Version 1)
Quarter: 2019Q3

REPORT INFORMATION
  Report Type: Spontaneous
  Country: US (occurrence: US)
  Receive Date: 20190725
  Receipt Date: 20190725
  Transmission Date: 20191004
  Serious: No
  Sender: FDA-Public Use
  Company Number: US-DERMIRA, INC.-US-2019DER000349

PATIENT
  Age: 35 Year
  Sex: Male

DRUGS (1)
  1. QBREXZA [Suspect]
     Active Substance: GLYCOPYRRONIUM TOSYLATE
     Indication: PRODUCT USED FOR UNKNOWN INDICATION
     Dosage: UNK
     Route: 061
     Dates: start: 20190530

REACTIONS (3)
  - Vision blurred [Recovering/Resolving]
  - Wrong technique in product usage process [Unknown]
  - Mydriasis [Unknown]

NARRATIVE: CASE EVENT DATE: 20190530
